FAERS Safety Report 10157795 (Version 2)
Quarter: 2014Q2

REPORT INFORMATION
  Report Type: Spontaneous
  Country: FR (occurrence: FR)
  Receive Date: 20140507
  Receipt Date: 20140617
  Transmission Date: 20141212
  Serious: Yes (Other)
  Sender: FDA-Public Use
  Company Number: FR-SA-2014SA057241

PATIENT
  Age: 66 Year
  Sex: Female

DRUGS (5)
  1. LANTUS SOLOSTAR [Suspect]
     Indication: DIABETES MELLITUS
     Route: 058
     Dates: start: 2008
  2. SOLOSTAR [Concomitant]
     Indication: DEVICE THERAPY
     Route: 058
     Dates: start: 2008
  3. METFORMIN HYDROCHLORIDE [Concomitant]
     Indication: DIABETES MELLITUS
     Route: 048
  4. MOPRAL [Concomitant]
     Route: 048
  5. KARDEGIC [Concomitant]
     Route: 048

REACTIONS (1)
  - Cardiac failure [Not Recovered/Not Resolved]
